FAERS Safety Report 14386565 (Version 2)
Quarter: 2020Q1

REPORT INFORMATION
  Report Type: Spontaneous
  Country: US (occurrence: US)
  Receive Date: 20180115
  Receipt Date: 20200110
  Transmission Date: 20200409
  Serious: Yes (Other)
  Sender: FDA-Public Use
  Company Number: US-SA-2017SA151320

PATIENT
  Age: 62 Year
  Sex: Female
  Weight: 77 kg

DRUGS (9)
  1. WELCHOL [Concomitant]
     Active Substance: COLESEVELAM HYDROCHLORIDE
     Dosage: UNK UNK,UNK
     Route: 065
  2. XANAX [Concomitant]
     Active Substance: ALPRAZOLAM
     Dosage: UNK UNK,UNK
     Route: 065
     Dates: end: 201505
  3. DOCETAXEL. [Suspect]
     Active Substance: DOCETAXEL
     Indication: BREAST CANCER FEMALE
     Dosage: UNK UNK,Q3W
     Route: 042
     Dates: start: 20131230, end: 20131230
  4. LEVOTHYROXINE. [Concomitant]
     Active Substance: LEVOTHYROXINE
     Dosage: UNK UNK,UNK
     Route: 048
  5. CARBOPLATIN. [Concomitant]
     Active Substance: CARBOPLATIN
  6. DOCETAXEL. [Suspect]
     Active Substance: DOCETAXEL
     Dosage: UNK UNK,Q3W
     Route: 042
     Dates: start: 20140422, end: 20140422
  7. OMEPRAZOLE. [Concomitant]
     Active Substance: OMEPRAZOLE
     Dosage: UNK UNK,UNK
     Route: 048
     Dates: end: 201505
  8. PANTOPRAZOLE [Concomitant]
     Active Substance: PANTOPRAZOLE
     Dosage: UNK UNK,UNK
     Route: 065
     Dates: end: 201505
  9. PRISTIQ EXTENDED-RELEASE [Concomitant]
     Active Substance: DESVENLAFAXINE SUCCINATE
     Dosage: UNK UNK,UNK
     Route: 048
     Dates: end: 201505

REACTIONS (2)
  - Psychological trauma [Unknown]
  - Alopecia [Not Recovered/Not Resolved]

NARRATIVE: CASE EVENT DATE: 201410
